FAERS Safety Report 20665464 (Version 1)
Quarter: 2022Q2

REPORT INFORMATION
  Report Type: Spontaneous
  Country: US (occurrence: US)
  Receive Date: 20220402
  Receipt Date: 20220402
  Transmission Date: 20220720
  Serious: Yes (Other)
  Sender: FDA-Public Use
  Company Number: US-STRIDES ARCOLAB LIMITED-2022SP003333

PATIENT
  Sex: Female

DRUGS (7)
  1. CABERGOLINE [Suspect]
     Active Substance: CABERGOLINE
     Indication: Prolactin-producing pituitary tumour
     Dosage: 0.25 MILLIGRAM, ONCE A WEEK
     Route: 048
     Dates: start: 2009
  2. CABERGOLINE [Suspect]
     Active Substance: CABERGOLINE
     Dosage: 0.25 MILLIGRAM, 2 TIMES A WEEK
     Route: 048
  3. CABERGOLINE [Suspect]
     Active Substance: CABERGOLINE
     Dosage: 0.25 MG, 2 TIMES A WEEK, RESUMED
     Route: 065
     Dates: end: 2013
  4. CABERGOLINE [Suspect]
     Active Substance: CABERGOLINE
     Dosage: 0.25 MG, RESUMED
     Route: 065
  5. CABERGOLINE [Suspect]
     Active Substance: CABERGOLINE
     Dosage: 0.25 MILLIGRAM, ONCE A WEEK, RESTARTED
     Route: 065
  6. CABERGOLINE [Suspect]
     Active Substance: CABERGOLINE
     Dosage: 0.25 MILLIGRAM, ALTERNATE WEEK, DOSE REDUCED
     Route: 065
  7. CABERGOLINE [Suspect]
     Active Substance: CABERGOLINE
     Dosage: UNK, RESUMED AND STOPPED
     Route: 065

REACTIONS (6)
  - Empty sella syndrome [Unknown]
  - Hemianopia heteronymous [Recovered/Resolved]
  - Balance disorder [Unknown]
  - Panic attack [Unknown]
  - Dizziness [Unknown]
  - Anxiety [Unknown]
